FAERS Safety Report 16022498 (Version 1)
Quarter: 2019Q2

REPORT INFORMATION
  Report Type: Spontaneous
  Country: US (occurrence: US)
  Receive Date: 20190301
  Receipt Date: 20190301
  Transmission Date: 20190711
  Serious: Yes (Other)
  Sender: FDA-Public Use
  Company Number: None

PATIENT
  Age: 54 Year
  Sex: Female
  Weight: 67.5 kg

DRUGS (6)
  1. VITAMIN D3 [Concomitant]
     Active Substance: CHOLECALCIFEROL
  2. PLENVU [Suspect]
     Active Substance: ASCORBIC ACID\POLYETHYLENE GLYCOL 3350\POTASSIUM CHLORIDE\SODIUM ASCORBATE\SODIUM CHLORIDE\SODIUM SULFATE
     Indication: PREOPERATIVE CARE
     Dosage: ?          OTHER FREQUENCY:2ND DOSE POU A + B;?
     Route: 048
     Dates: start: 20190301, end: 20190301
  3. TUMERIC [Concomitant]
     Active Substance: HERBALS\TURMERIC
  4. KRILL OIL [Concomitant]
     Active Substance: DIETARY SUPPLEMENT
  5. FERMENTED MUSHROOMS [Concomitant]
  6. CALCIUM [Concomitant]
     Active Substance: CALCIUM

REACTIONS (4)
  - Chromaturia [None]
  - Dehydration [None]
  - Abdominal pain [None]
  - Nausea [None]

NARRATIVE: CASE EVENT DATE: 20190301
